FAERS Safety Report 8513872-6 (Version None)
Quarter: 2012Q2

REPORT INFORMATION
  Report Type: 
  Country: None (occurrence: None)
  Receive Date: 20120406
  Receipt Date: 20110110
  Transmission Date: 20120825
  Serious: Yes (Hospitalization)
  Sender: FDA-Public Use
  Company Number: PHHY2010US67777

PATIENT
  Age: 80 Year
  Sex: Female

DRUGS (1)
  1. TASIGNA [Suspect]
     Indication: CHRONIC MYELOID LEUKAEMIA
     Dosage: 150 MG, BID, ORAL
     Route: 048
     Dates: start: 20100809

REACTIONS (9)
  - VOMITING [None]
  - MYOCARDIAL INFARCTION [None]
  - HERPES ZOSTER [None]
  - WEIGHT DECREASED [None]
  - NAUSEA [None]
  - ANGINA PECTORIS [None]
  - ANAEMIA [None]
  - RENAL DISORDER [None]
  - DECREASED APPETITE [None]
